FAERS Safety Report 9118114 (Version 1)
Quarter: 2013Q1

REPORT INFORMATION
  Report Type: Report from Study
  Country: US (occurrence: US)
  Receive Date: 20130129
  Receipt Date: 20130129
  Transmission Date: 20140127
  Serious: No
  Sender: FDA-Public Use
  Company Number: US-ABBOTT-12P-163-0936563-00

PATIENT
  Age: 65 Year
  Sex: Male

DRUGS (19)
  1. HUMIRA 40 MG/0.8 ML PEN [Suspect]
     Indication: CROHN^S DISEASE
     Dosage: 160MG 03 MAY 2012, 80MG 17 MAY 2012
     Route: 058
     Dates: start: 20120503
  2. AMLODIPINE [Concomitant]
     Indication: BLOOD PRESSURE
  3. CHLORTHALIDONE [Concomitant]
     Indication: BLOOD PRESSURE
     Dosage: ON MONDAY, WEDNESDAY, AND FRIDAY
  4. BYSTOLIC [Concomitant]
     Indication: BLOOD PRESSURE
  5. PENTASA [Concomitant]
     Indication: CROHN^S DISEASE
  6. PURINETHOL [Concomitant]
     Indication: CROHN^S DISEASE
  7. LIBRAX [Concomitant]
     Indication: CROHN^S DISEASE
  8. AMITRIPTYLINE [Concomitant]
     Indication: CROHN^S DISEASE
     Dosage: DAILY
  9. PRILOSEC [Concomitant]
     Indication: CROHN^S DISEASE
  10. HYDRALAZINE [Concomitant]
     Indication: BLOOD PRESSURE
  11. MISOPROSTOL [Concomitant]
     Indication: ADVERSE DRUG REACTION
  12. TERAZOSIN [Concomitant]
     Indication: RENAL DISORDER
     Dosage: DAILY
  13. POTASSIUM [Concomitant]
     Indication: MINERAL SUPPLEMENTATION
  14. BUDESONIDE [Concomitant]
     Indication: CROHN^S DISEASE
     Dosage: DAILY
  15. SINGULAIR [Concomitant]
     Indication: SINUSITIS
     Dosage: DAILY
  16. MULTIVITAMIN [Concomitant]
     Indication: PRODUCT USED FOR UNKNOWN INDICATION
     Dosage: DAILY
  17. VITAMIN B12 [Concomitant]
     Indication: PRODUCT USED FOR UNKNOWN INDICATION
     Dosage: DAILY
  18. ACIDOPHILUS [Concomitant]
     Indication: PROBIOTIC THERAPY
  19. VITAMIN D [Concomitant]
     Indication: PRODUCT USED FOR UNKNOWN INDICATION

REACTIONS (1)
  - Tinnitus [Not Recovered/Not Resolved]
